FAERS Safety Report 5162850-6 (Version None)
Quarter: 2006Q4

REPORT INFORMATION
  Report Type: 
  Country: None (occurrence: None)
  Receive Date: 20061201
  Receipt Date: 20020130
  Transmission Date: 20070319
  Serious: Yes (Hospitalization)
  Sender: FDA-Public Use
  Company Number: FR-GLAXOSMITHKLINE-B0135327A

PATIENT
  Age: 42 Year
  Sex: Male
  Weight: 59 kg

DRUGS (9)
  1. COMBIVIR [Suspect]
     Indication: HIV INFECTION
     Route: 048
     Dates: start: 20010409, end: 20011127
  2. TENOFOVIR [Suspect]
     Indication: HIV INFECTION
     Route: 048
     Dates: start: 20010626, end: 20011127
  3. BACTRIM [Concomitant]
     Dosage: 1UNIT PER DAY
  4. CLAMOXYL [Concomitant]
     Indication: LOWER RESPIRATORY TRACT INFECTION
     Dates: start: 20011001
  5. OFLOCET(OFLOXACINE) [Concomitant]
     Indication: LOWER RESPIRATORY TRACT INFECTION
     Dates: start: 20011001, end: 20010101
  6. DIDANOSINE [Concomitant]
     Indication: HIV INFECTION
     Dates: start: 20010401, end: 20010401
  7. KALETRA [Concomitant]
     Indication: HIV INFECTION
     Dates: start: 20010601, end: 20010601
  8. STAVUDINE [Concomitant]
     Indication: HIV INFECTION
     Dates: start: 20010401, end: 20010401
  9. TRIFLUCAN [Concomitant]

REACTIONS (23)
  - ANAEMIA MACROCYTIC [None]
  - ASTHENIA [None]
  - BLOOD LACTIC ACID INCREASED [None]
  - BLOOD PYRUVIC ACID ABNORMAL [None]
  - CARDIAC MURMUR [None]
  - CHEST PAIN [None]
  - COUGH [None]
  - DIABETES MELLITUS [None]
  - GENERAL PHYSICAL CONDITION [None]
  - HEPATIC ENZYME INCREASED [None]
  - HYPOAESTHESIA [None]
  - LEUKOPENIA [None]
  - LIPODYSTROPHY ACQUIRED [None]
  - LUNG DISORDER [None]
  - MUSCULAR WEAKNESS [None]
  - MYALGIA [None]
  - NAUSEA [None]
  - NEUTROPENIA [None]
  - PAIN IN EXTREMITY [None]
  - PAROTID GLAND ENLARGEMENT [None]
  - PYREXIA [None]
  - VOMITING [None]
  - WEIGHT DECREASED [None]
